FAERS Safety Report 6675127-4 (Version None)
Quarter: 2010Q2

REPORT INFORMATION
  Report Type: 
  Country: None (occurrence: None)
  Receive Date: 20100407
  Receipt Date: 20100326
  Transmission Date: 20101027
  Serious: Yes (Death, Other)
  Sender: FDA-Public Use
  Company Number: LEO-2010-00238

PATIENT
  Age: 68 Year
  Sex: Male

DRUGS (2)
  1. INNOHEP [Suspect]
  2. HEPARIN [Concomitant]

REACTIONS (5)
  - CONFUSIONAL STATE [None]
  - DISEASE COMPLICATION [None]
  - GENERAL PHYSICAL HEALTH DETERIORATION [None]
  - HEPARIN-INDUCED THROMBOCYTOPENIA [None]
  - SKIN NECROSIS [None]
